FAERS Safety Report 4814654-9 (Version None)
Quarter: 2005Q4

REPORT INFORMATION
  Report Type: 
  Country: None (occurrence: None)
  Receive Date: 20051028
  Receipt Date: 20050916
  Transmission Date: 20060501
  Serious: Yes (Other)
  Sender: FDA-Public Use
  Company Number: DE-GLAXOSMITHKLINE-D0047526A

PATIENT
  Age: 16 Year
  Sex: Female
  Weight: 48 kg

DRUGS (2)
  1. ZOVIRAX [Suspect]
     Dosage: 200MG FOUR TIMES PER DAY
     Route: 048
     Dates: start: 20050902, end: 20050915
  2. YASMIN [Concomitant]
     Indication: ORAL CONTRACEPTION
     Route: 048
     Dates: start: 20050701

REACTIONS (5)
  - CYSTITIS [None]
  - HAEMOGLOBINURIA [None]
  - LEUKOCYTURIA [None]
  - PROTEINURIA [None]
  - PYELONEPHRITIS [None]
